FAERS Safety Report 25181798 (Version 1)
Quarter: 2025Q2

REPORT INFORMATION
  Report Type: Spontaneous
  Country: US (occurrence: US)
  Receive Date: 20250410
  Receipt Date: 20250410
  Transmission Date: 20250716
  Serious: No
  Sender: SANOFI AVENTIS
  Company Number: US-SA-2025SA101884

PATIENT
  Sex: Female
  Weight: 138 kg

DRUGS (7)
  1. DUPIXENT [Suspect]
     Active Substance: DUPILUMAB
     Indication: Dermatitis atopic
     Dosage: 300 MG, QOW
     Route: 058
  2. ZYRTEC [Concomitant]
     Active Substance: CETIRIZINE HYDROCHLORIDE
  3. GAS-X [Concomitant]
     Active Substance: DIMETHICONE
  4. IRON [Concomitant]
     Active Substance: IRON
  5. MIRALAX [Concomitant]
     Active Substance: POLYETHYLENE GLYCOL 3350
  6. FAMOTIDINE [Concomitant]
     Active Substance: FAMOTIDINE
  7. LEXAPRO [Concomitant]
     Active Substance: ESCITALOPRAM OXALATE

REACTIONS (2)
  - Acne [Unknown]
  - Dry skin [Unknown]

NARRATIVE: CASE EVENT DATE: 20240801
